FAERS Safety Report 16541447 (Version 7)
Quarter: 2020Q3

REPORT INFORMATION
  Report Type: Spontaneous
  Country: PL (occurrence: PL)
  Receive Date: 20190708
  Receipt Date: 20200701
  Transmission Date: 20201102
  Serious: Yes (Hospitalization, Other)
  Sender: FDA-Public Use
  Company Number: PL-MYLANLABS-2019M1062687

PATIENT
  Age: 47 Year
  Sex: Female

DRUGS (16)
  1. CETIRIZINE                         /00884302/ [Suspect]
     Active Substance: CETIRIZINE HYDROCHLORIDE
     Dosage: 1 DOSAGE FORM (1 MG/ML)
  2. HYDROXYZINE [Suspect]
     Active Substance: HYDROXYZINE HYDROCHLORIDE
     Dosage: 4 MILLIGRAM
     Route: 048
  3. DOXEPIN                            /00138002/ [Suspect]
     Active Substance: DOXEPIN
     Dosage: UNK, UNKNOWN DOSE
  4. FEXOFENADINE [Suspect]
     Active Substance: FEXOFENADINE HYDROCHLORIDE
     Indication: DRUG PROVOCATION TEST
  5. FEXOFENADINE [Suspect]
     Active Substance: FEXOFENADINE HYDROCHLORIDE
     Indication: PRURITUS
     Dosage: 30 MG/ML
  6. CETIRIZINE                         /00884302/ [Suspect]
     Active Substance: CETIRIZINE HYDROCHLORIDE
     Indication: DRUG PROVOCATION TEST
     Dosage: 1 MILLIGRAM PER MILLILITRE (1 DOSAGEFORM)
     Route: 048
  7. LORATADINE. [Suspect]
     Active Substance: LORATADINE
     Indication: PHYSICAL EXAMINATION
     Dosage: 5 MILLIGRAM PER MILLILITRE
  8. FEXOFENADINE [Suspect]
     Active Substance: FEXOFENADINE HYDROCHLORIDE
     Indication: RHINITIS ALLERGIC
     Dosage: 30 DOSAGE FORM (30 MG/ML)
     Route: 048
  9. DIPHENHYDRAMINE. [Suspect]
     Active Substance: DIPHENHYDRAMINE
     Indication: DRUG PROVOCATION TEST
     Dosage: 12.5 MG/5 ML
     Route: 048
  10. LEVOCETIRIZINE [Suspect]
     Active Substance: LEVOCETIRIZINE
     Indication: DRUG PROVOCATION TEST
     Dosage: 2.5 MILLIGRAM PER MILLILITRE
     Route: 048
  11. LORATADINE. [Suspect]
     Active Substance: LORATADINE
     Indication: DRUG PROVOCATION TEST
     Dosage: 5 MILLIGRAM PER MILLILITRE (5 DOSAGE FORM)
     Route: 048
  12. HYDROXYZINE [Suspect]
     Active Substance: HYDROXYZINE HYDROCHLORIDE
     Indication: DRUG PROVOCATION TEST
     Dosage: 2 MILLIGRAM, QD
     Route: 048
  13. HYDROXYZINE [Suspect]
     Active Substance: HYDROXYZINE HYDROCHLORIDE
     Dosage: 10 MILLIGRAM
  14. HYDROXYZINE [Suspect]
     Active Substance: HYDROXYZINE HYDROCHLORIDE
     Indication: ALLERGY TEST
     Dosage: 25 MILLIGRAM
     Route: 048
  15. HYDROXYZINE [Suspect]
     Active Substance: HYDROXYZINE HYDROCHLORIDE
     Dosage: 10 MILLIGRAM PER MILLILITRE (10 DOSAGEFORM)
     Route: 048
  16. DOXEPIN                            /00138002/ [Suspect]
     Active Substance: DOXEPIN
     Indication: DRUG PROVOCATION TEST
     Dosage: 10 MILLIGRAM PER MILLILITRE (10 DOSAGE FORM)
     Route: 048

REACTIONS (9)
  - Eosinophilia [Recovered/Resolved]
  - Anaphylactic reaction [Unknown]
  - Nasal congestion [Recovering/Resolving]
  - Drug hypersensitivity [Recovered/Resolved]
  - Peripheral swelling [Recovering/Resolving]
  - Dyspnoea [Recovering/Resolving]
  - Pruritus [Recovering/Resolving]
  - Bronchospasm [Recovering/Resolving]
  - Cough [Recovering/Resolving]
